FAERS Safety Report 5550302-0 (Version None)
Quarter: 2007Q4

REPORT INFORMATION
  Report Type: 
  Country: None (occurrence: None)
  Receive Date: 20071128
  Receipt Date: 20061019
  Transmission Date: 20080405
  Serious: Yes (Other)
  Sender: FDA-Public Use
  Company Number: 2006129701

PATIENT
  Age: 66 Year
  Sex: Female
  Weight: 58.9676 kg

DRUGS (10)
  1. LIPITOR [Suspect]
     Indication: HYPERLIPIDAEMIA
     Dosage: 20 MG, (20 MG, 1 IN 1 D)
  2. TENORMIN [Concomitant]
  3. SYNTHROID [Concomitant]
  4. HYDROCHLOROTHIAZIDE [Concomitant]
  5. ALLEGRA [Concomitant]
  6. COLAZAL (BALSALAZIDE SODIUM) [Concomitant]
  7. ALL OTHER THERAPEUTIC PRODUCTS (ALL OTHER THERAPEUTIC PRODUCTS) [Concomitant]
  8. FOSAMAX [Concomitant]
  9. CALCIUM WITH VITAMIN D (CALCIUM PHOSPHATE, CALCIUM SODIUM LACTATE, ERG [Concomitant]
  10. ALL OTHER THERAPEUTIC PRODUCTS (ALL OTHER THERAPEUTIC PRODUCTS) [Concomitant]

REACTIONS (2)
  - COLITIS [None]
  - WEIGHT DECREASED [None]
